FAERS Safety Report 7122967-3 (Version None)
Quarter: 2010Q4

REPORT INFORMATION
  Report Type: 
  Country: None (occurrence: None)
  Receive Date: 20101124
  Receipt Date: 20101110
  Transmission Date: 20110411
  Serious: Yes (Hospitalization)
  Sender: FDA-Public Use
  Company Number: US-ELI_LILLY_AND_COMPANY-US201011003168

PATIENT
  Age: 76 Year
  Sex: Female

DRUGS (7)
  1. FORTEO [Suspect]
     Indication: OSTEOPOROSIS
     Dosage: 20 UG, DAILY (1/D)
     Dates: end: 20100620
  2. AGGRENOX [Concomitant]
     Dosage: UNK, 2/D
  3. LASIX [Concomitant]
     Dosage: UNK, QOD
  4. ZOCOR [Concomitant]
     Dosage: 10 MG, EACH EVENING
  5. PROPRAL [Concomitant]
     Dosage: 50 MG, UNK
  6. DIOVAN [Concomitant]
     Dosage: 320 MG, UNK
  7. FLEXERIL [Concomitant]
     Indication: NECK PAIN
     Dosage: UNK, AS NEEDED

REACTIONS (10)
  - ARTHRALGIA [None]
  - BACK PAIN [None]
  - HEADACHE [None]
  - LIMB DISCOMFORT [None]
  - MALAISE [None]
  - MUSCULOSKELETAL PAIN [None]
  - NECK PAIN [None]
  - PAIN [None]
  - PAIN IN JAW [None]
  - PULSE ABNORMAL [None]
